FAERS Safety Report 6448865-6 (Version None)
Quarter: 2009Q4

REPORT INFORMATION
  Report Type: 
  Country: None (occurrence: None)
  Receive Date: 20091120
  Receipt Date: 20091109
  Transmission Date: 20100525
  Serious: Yes (Other)
  Sender: FDA-Public Use
  Company Number: US-ELI_LILLY_AND_COMPANY-US200911002524

PATIENT

DRUGS (2)
  1. PEMETREXED [Suspect]
     Indication: NON-SMALL CELL LUNG CANCER METASTATIC
  2. BEVACIZUMAB [Concomitant]
     Indication: NON-SMALL CELL LUNG CANCER METASTATIC
     Dosage: 15 MG/KG, EVERY 21 DAYS

REACTIONS (1)
  - HYPERTENSION [None]
